FAERS Safety Report 7727197-X (Version None)
Quarter: 2011Q3

REPORT INFORMATION
  Report Type: 
  Country: None (occurrence: None)
  Receive Date: 20110902
  Receipt Date: 20110331
  Transmission Date: 20111222
  Serious: Yes (Hospitalization)
  Sender: FDA-Public Use
  Company Number: US-BAYER-201029527NA

PATIENT
  Age: 19 Year
  Sex: Female
  Weight: 54 kg

DRUGS (6)
  1. JUNEL FE 1.5/30 [Concomitant]
     Dosage: UNK
     Dates: start: 20090627
  2. YAZ [Suspect]
     Indication: ACNE
     Dosage: UNK UNK, UNK
     Route: 048
     Dates: start: 20070101, end: 20090101
  3. YASMIN [Suspect]
     Indication: ACNE
     Dosage: UNK
     Dates: start: 20070101, end: 20090101
  4. LOESTRIN 1.5/30 [Concomitant]
     Dosage: UNK
     Dates: start: 20090526
  5. ADDERALL 5 [Concomitant]
     Dosage: 5 MG, UNK
     Route: 048
  6. VITAMIN B12 NOS [Concomitant]

REACTIONS (3)
  - CHOLELITHIASIS [None]
  - CHOLECYSTITIS ACUTE [None]
  - GALLBLADDER DISORDER [None]
